FAERS Safety Report 5630104-7 (Version None)
Quarter: 2008Q1

REPORT INFORMATION
  Report Type: 
  Country: None (occurrence: None)
  Receive Date: 20080218
  Receipt Date: 20080208
  Transmission Date: 20080703
  Serious: Yes (Other)
  Sender: FDA-Public Use
  Company Number: PHBS2008CH01922

PATIENT
  Age: 64 Year
  Sex: Male

DRUGS (4)
  1. VOLTAREN [Suspect]
     Indication: MYALGIA
     Dosage: 50 MG/DAY
     Route: 048
  2. DIOVAN [Suspect]
     Indication: HYPERTENSION
  3. LESCOL [Concomitant]
  4. ASPIRIN [Concomitant]

REACTIONS (11)
  - ABDOMINAL PAIN [None]
  - ANAPHYLACTOID REACTION [None]
  - ANGIOEDEMA [None]
  - BLOOD PRESSURE DECREASED [None]
  - CHILLS [None]
  - CIRCULATORY COLLAPSE [None]
  - COUGH [None]
  - HEART RATE DECREASED [None]
  - LOSS OF CONSCIOUSNESS [None]
  - PRURITUS [None]
  - URTICARIA [None]
